FAERS Safety Report 19051945 (Version 1)
Quarter: 2021Q1

REPORT INFORMATION
  Report Type: Spontaneous
  Country: SE (occurrence: SE)
  Receive Date: 20210324
  Receipt Date: 20210324
  Transmission Date: 20210420
  Serious: Yes (Hospitalization)
  Sender: FDA-Public Use
  Company Number: SE-PFIZER INC-2021267075

PATIENT
  Age: 44 Year
  Sex: Male

DRUGS (2)
  1. LONSURF [Concomitant]
     Active Substance: TIPIRACIL HYDROCHLORIDE\TRIFLURIDINE
     Dosage: UNK
     Dates: start: 20200907
  2. BEVACIZUMAB. [Suspect]
     Active Substance: BEVACIZUMAB
     Indication: RECTAL CANCER METASTATIC
     Dosage: UNK, X7 DOSING 509
     Route: 042
     Dates: start: 20200905, end: 20201125

REACTIONS (1)
  - Anal fistula [Unknown]

NARRATIVE: CASE EVENT DATE: 202011
